FAERS Safety Report 4853446-1 (Version None)
Quarter: 2005Q4

REPORT INFORMATION
  Report Type: 
  Country: None (occurrence: None)
  Receive Date: 20051130
  Receipt Date: 20051012
  Transmission Date: 20060501
  Serious: No
  Sender: FDA-Public Use
  Company Number: WAES 0510USA06873

PATIENT
  Age: 45 Year
  Sex: Male

DRUGS (7)
  1. ZETIA [Suspect]
     Indication: BLOOD CHOLESTEROL INCREASED
     Dosage: 10 MG/DAILY/PO
     Route: 048
     Dates: start: 20050912, end: 20051007
  2. AMARYL [Concomitant]
  3. PRECOSE [Concomitant]
  4. DIAZEPAM [Concomitant]
  5. HYDROCHLOROTHIAZIDE (+) LISINOPRIL [Concomitant]
  6. METFORMIN [Concomitant]
  7. PAROXETINE HCL [Concomitant]

REACTIONS (2)
  - MUSCLE SPASMS [None]
  - MYALGIA [None]
